FAERS Safety Report 8371478-6 (Version None)
Quarter: 2012Q2

REPORT INFORMATION
  Report Type: 
  Country: None (occurrence: None)
  Receive Date: 20120518
  Receipt Date: 20120516
  Transmission Date: 20120825
  Serious: Yes (Other)
  Sender: FDA-Public Use
  Company Number: US-PFIZER INC-2012092902

PATIENT
  Sex: Female

DRUGS (2)
  1. CRESTOR [Concomitant]
     Indication: BLOOD CHOLESTEROL ABNORMAL
     Dosage: 40 MG, DAILY
  2. CHANTIX [Suspect]
     Indication: SMOKING CESSATION THERAPY
     Dosage: 0.5 MG, DAILY
     Route: 048
     Dates: start: 20120401, end: 20120406

REACTIONS (8)
  - DYSPHAGIA [None]
  - THROAT TIGHTNESS [None]
  - JOINT RANGE OF MOTION DECREASED [None]
  - FEELING ABNORMAL [None]
  - URTICARIA [None]
  - MUSCULOSKELETAL STIFFNESS [None]
  - HEADACHE [None]
  - EAR PAIN [None]
